FAERS Safety Report 11833726 (Version 2)
Quarter: 2016Q1

REPORT INFORMATION
  Report Type: Spontaneous
  Country: US (occurrence: US)
  Receive Date: 20151214
  Receipt Date: 20160203
  Transmission Date: 20160525
  Serious: No
  Sender: FDA-Public Use
  Company Number: US-BAYER-2015-484751

PATIENT
  Age: 50 Year
  Sex: Female
  Weight: 61.22 kg

DRUGS (1)
  1. ALEVE [Suspect]
     Active Substance: NAPROXEN SODIUM
     Dosage: 2 DF, UNK
     Route: 048

REACTIONS (5)
  - Off label use [None]
  - Product use issue [None]
  - Dysgeusia [Recovered/Resolved]
  - Product container issue [None]
  - Dysgeusia [None]

NARRATIVE: CASE EVENT DATE: 20151207
